FAERS Safety Report 7531425-3 (Version None)
Quarter: 2011Q2

REPORT INFORMATION
  Report Type: 
  Country: None (occurrence: None)
  Receive Date: 20110608
  Receipt Date: 20110603
  Transmission Date: 20111010
  Serious: Yes (Other)
  Sender: FDA-Public Use
  Company Number: US-SANOFI-AVENTIS-2011SA035655

PATIENT
  Sex: Female
  Weight: 123 kg

DRUGS (6)
  1. LASIX [Suspect]
     Route: 065
  2. ZETIA [Concomitant]
  3. SYNTHROID [Concomitant]
  4. LANTUS [Concomitant]
  5. NITROGLYCERIN [Concomitant]
  6. NEXIUM [Concomitant]

REACTIONS (1)
  - ATRIAL FIBRILLATION [None]
